FAERS Safety Report 5449241-5 (Version None)
Quarter: 2007Q3

REPORT INFORMATION
  Report Type: 
  Country: None (occurrence: None)
  Receive Date: 20070911
  Receipt Date: 20070828
  Transmission Date: 20080115
  Serious: Yes (Hospitalization, Other)
  Sender: FDA-Public Use
  Company Number: BR-SHR-BR-2007-012600

PATIENT
  Age: 44 Year
  Sex: Female

DRUGS (4)
  1. BETAFERON [Suspect]
     Dosage: 8 MIU, EVERY 2D
     Route: 058
     Dates: start: 20020101
  2. METHADON HCL TAB [Concomitant]
     Dosage: 1 TAB(S), 2X/DAY
     Route: 048
  3. DIAZEPAM [Concomitant]
     Dosage: 1 TAB(S), 3X/DAY
     Route: 048
  4. FLUOXETINE [Concomitant]
     Dosage: 1 TAB(S), 3X/DAY
     Route: 048

REACTIONS (14)
  - ANOREXIA [None]
  - ARTHRALGIA [None]
  - DEPRESSED MOOD [None]
  - DEPRESSION [None]
  - FAECAL INCONTINENCE [None]
  - IRRITABILITY [None]
  - MULTIPLE SCLEROSIS [None]
  - NECK PAIN [None]
  - PAIN IN EXTREMITY [None]
  - PNEUMONIA [None]
  - PROSTRATION [None]
  - QUADRIPARESIS [None]
  - SUICIDAL IDEATION [None]
  - URINARY INCONTINENCE [None]
